FAERS Safety Report 14749797 (Version 1)
Quarter: 2018Q2

REPORT INFORMATION
  Report Type: Report from Study
  Country: None (occurrence: DE)
  Receive Date: 20180412
  Receipt Date: 20180412
  Transmission Date: 20180711
  Serious: Yes (Hospitalization)
  Sender: FDA-Public Use
  Company Number: DE-ABBVIE-18K-062-2319096-00

PATIENT
  Sex: Male

DRUGS (1)
  1. DUODOPA [Suspect]
     Active Substance: CARBIDOPA\LEVODOPA
     Indication: PARKINSON^S DISEASE
     Dosage: MD: .8,0ML; CRD: 2.6ML/H; ED: 0.8ML
     Route: 050
     Dates: start: 20180313

REACTIONS (2)
  - General physical health deterioration [Unknown]
  - Drug effect incomplete [Unknown]
